FAERS Safety Report 5604949-3 (Version None)
Quarter: 2008Q1

REPORT INFORMATION
  Report Type: 
  Country: None (occurrence: None)
  Receive Date: 20080128
  Receipt Date: 20080107
  Transmission Date: 20080703
  Serious: No
  Sender: FDA-Public Use
  Company Number: US-BOEHRINGER INGELHEIM PHARMACEUTICALS, INC.-2008-BP-00279BP

PATIENT
  Sex: Female

DRUGS (1)
  1. FLOMAX [Suspect]
     Route: 048

REACTIONS (1)
  - RHINORRHOEA [None]
